FAERS Safety Report 9144507 (Version 2)
Quarter: 2013Q4

REPORT INFORMATION
  Report Type: Report from Study
  Country: JP (occurrence: JP)
  Receive Date: 20130306
  Receipt Date: 20131115
  Transmission Date: 20140711
  Serious: Yes (Hospitalization)
  Sender: FDA-Public Use
  Company Number: JP-ROCHE-1197598

PATIENT
  Sex: Female
  Weight: 111.96 kg

DRUGS (7)
  1. OMALIZUMAB [Suspect]
     Indication: ASTHMA
     Route: 058
     Dates: start: 20100614, end: 20100927
  2. OMALIZUMAB [Suspect]
     Route: 058
     Dates: start: 20101018
  3. OMALIZUMAB [Suspect]
     Route: 058
     Dates: start: 20101227, end: 20101227
  4. OMALIZUMAB [Suspect]
     Route: 058
     Dates: start: 20110411, end: 20110411
  5. DIOVAN [Concomitant]
     Route: 065
     Dates: start: 20100614
  6. SYMBICORT [Concomitant]
     Route: 065
     Dates: start: 20100524
  7. AMLODIN [Concomitant]
     Route: 065
     Dates: start: 20100614

REACTIONS (1)
  - Asthma [Recovering/Resolving]
